FAERS Safety Report 4349225-4 (Version None)
Quarter: 2004Q2

REPORT INFORMATION
  Report Type: 
  Country: None (occurrence: None)
  Receive Date: 20040428
  Receipt Date: 20040405
  Transmission Date: 20050107
  Serious: Yes (Other)
  Sender: FDA-Public Use
  Company Number: JP-MERCK-0404USA00986

PATIENT
  Age: 70 Year
  Sex: Male

DRUGS (1)
  1. PEPCID [Suspect]
     Indication: GASTROINTESTINAL HAEMORRHAGE
     Route: 042
     Dates: start: 20040402, end: 20040405

REACTIONS (2)
  - BRAIN NEOPLASM [None]
  - DISORIENTATION [None]
